FAERS Safety Report 16944545 (Version 2)
Quarter: 2019Q4

REPORT INFORMATION
  Report Type: Spontaneous
  Country: DE (occurrence: DE)
  Receive Date: 20191022
  Receipt Date: 20191031
  Transmission Date: 20200122
  Serious: Yes (Hospitalization)
  Sender: FDA-Public Use
  Company Number: DE-TORRENT-00015157

PATIENT
  Age: 66 Year
  Sex: Female
  Weight: 68 kg

DRUGS (5)
  1. COTRIM [Suspect]
     Active Substance: SULFAMETHOXAZOLE\TRIMETHOPRIM
     Indication: CYSTITIS NONINFECTIVE
     Dosage: UNKNOWN
     Dates: start: 201812
  2. OFLOX [Suspect]
     Active Substance: OFLOXACIN
     Indication: CYSTITIS NONINFECTIVE
     Dosage: UNKNOWN
     Dates: start: 201812
  3. CIPROFLOXACIN. [Suspect]
     Active Substance: CIPROFLOXACIN
     Indication: BRONCHITIS
     Route: 048
     Dates: start: 201902, end: 201902
  4. LEVOFLOXACIN. [Suspect]
     Active Substance: LEVOFLOXACIN
     Indication: BRONCHITIS
     Dosage: TOTAL OF 7 TABLETS
     Route: 048
     Dates: start: 201811, end: 201811
  5. CEFUROXIME. [Suspect]
     Active Substance: CEFUROXIME
     Indication: CYSTITIS NONINFECTIVE
     Dosage: UNKNOWN
     Dates: start: 201904

REACTIONS (13)
  - Tendon disorder [Unknown]
  - Muscular weakness [Unknown]
  - Pain in extremity [Unknown]
  - Presyncope [Unknown]
  - Formication [Unknown]
  - Fibromyalgia [Unknown]
  - Back pain [Unknown]
  - Musculoskeletal pain [Unknown]
  - General physical health deterioration [Unknown]
  - Tendon rupture [Unknown]
  - Arthralgia [Unknown]
  - Anxiety [Unknown]
  - Illusion [Unknown]

NARRATIVE: CASE EVENT DATE: 2019
